FAERS Safety Report 4907755-8 (Version None)
Quarter: 2006Q1

REPORT INFORMATION
  Report Type: 
  Country: None (occurrence: None)
  Receive Date: 20060208
  Receipt Date: 20060208
  Transmission Date: 20060701
  Serious: Yes (Hospitalization)
  Sender: FDA-Public Use
  Company Number: None

PATIENT
  Age: 79 Year
  Sex: Male

DRUGS (8)
  1. LORATADINE [Suspect]
     Indication: HYPERSENSITIVITY
     Dosage: 10MG QD
     Dates: start: 20050728
  2. DILTIAZEM HCL [Concomitant]
  3. LANSOPRAZOLE [Concomitant]
  4. FOSINOPRIL SODIUM [Concomitant]
  5. SIMVASTATIN [Concomitant]
  6. HYDROCHLOROTHIAZIDE [Concomitant]
  7. TRAZODONE [Concomitant]
  8. ISOSORBIDE [Concomitant]

REACTIONS (1)
  - MENTAL STATUS CHANGES [None]
